FAERS Safety Report 4632247-3 (Version None)
Quarter: 2005Q2

REPORT INFORMATION
  Report Type: 
  Country: None (occurrence: None)
  Receive Date: 20050411
  Receipt Date: 20050215
  Transmission Date: 20051028
  Serious: Yes (Hospitalization)
  Sender: FDA-Public Use
  Company Number: JP-ROCHE-395982

PATIENT
  Age: 51 Year
  Sex: Female

DRUGS (4)
  1. TAMIFLU [Suspect]
     Route: 048
     Dates: start: 20050212, end: 20050212
  2. LOXONIN [Suspect]
     Indication: PYREXIA
     Route: 048
     Dates: start: 20050212, end: 20050212
  3. AMLODIN [Concomitant]
     Indication: HYPERTENSION
     Dosage: DOSAGE REPORTED AS ^1 TABLET^
     Route: 065
     Dates: start: 19970615
  4. BLOPRESS [Concomitant]
     Indication: HYPERTENSION
     Dosage: DOSAGE REPORTED AS ^1 TABLET^
     Route: 065
     Dates: start: 19970615

REACTIONS (1)
  - BLOOD PRESSURE DECREASED [None]
